FAERS Safety Report 4820922-7 (Version None)
Quarter: 2005Q4

REPORT INFORMATION
  Report Type: 
  Country: None (occurrence: None)
  Receive Date: 20051104
  Receipt Date: 20051024
  Transmission Date: 20060501
  Serious: Yes (Other)
  Sender: FDA-Public Use
  Company Number: FR-BRISTOL-MYERS SQUIBB COMPANY-13156278

PATIENT
  Age: 66 Year
  Sex: Female

DRUGS (6)
  1. ATAZANAVIR [Suspect]
     Dosage: INCREASED TO 400 MG DAILY IN SEPT-2004
     Dates: start: 20040101
  2. LAMIVUDINE [Suspect]
  3. TENOFOVIR [Suspect]
  4. RITONAVIR [Suspect]
     Dates: start: 20040101, end: 20040101
  5. STAVUDINE [Concomitant]
  6. NELFINAVIR [Concomitant]

REACTIONS (3)
  - HYPERBILIRUBINAEMIA [None]
  - HYPERTROPHY BREAST [None]
  - LIPOATROPHY [None]
